FAERS Safety Report 4642180-9 (Version None)
Quarter: 2005Q2

REPORT INFORMATION
  Report Type: 
  Country: None (occurrence: None)
  Receive Date: 20050421
  Receipt Date: 20050315
  Transmission Date: 20051028
  Serious: Yes (Hospitalization, Other)
  Sender: FDA-Public Use
  Company Number: 2005S1001373

PATIENT
  Age: 49 Year
  Sex: Male
  Weight: 83.9154 kg

DRUGS (3)
  1. EXTENDED PHENYTOIN SODIUM [Suspect]
     Indication: CONVULSION
     Dosage: SEE IMAGE, PO
     Route: 048
     Dates: end: 20050301
  2. PHENOBARBITAL [Concomitant]
  3. LEVOTHYROXINE SODIUM [Concomitant]

REACTIONS (2)
  - ANTICONVULSANT DRUG LEVEL DECREASED [None]
  - GRAND MAL CONVULSION [None]
